FAERS Safety Report 8154241-0 (Version None)
Quarter: 2012Q1

REPORT INFORMATION
  Report Type: 
  Country: None (occurrence: None)
  Receive Date: 20120221
  Receipt Date: 20120212
  Transmission Date: 20120608
  Serious: Yes (Other)
  Sender: FDA-Public Use
  Company Number: US-ABBOTT-12P-163-0904777-00

PATIENT
  Sex: Male
  Weight: 81.72 kg

DRUGS (2)
  1. UNKNOWN TOPICAL CREAMS [Concomitant]
     Indication: PSORIASIS
  2. HUMIRA [Suspect]
     Indication: PSORIASIS
     Route: 058
     Dates: start: 20120126

REACTIONS (4)
  - INFLAMMATION [None]
  - CHEST PAIN [None]
  - AORTIC VALVE DISEASE [None]
  - PAIN [None]
